FAERS Safety Report 5632146-4 (Version None)
Quarter: 2008Q1

REPORT INFORMATION
  Report Type: 
  Country: None (occurrence: None)
  Receive Date: 20080220
  Receipt Date: 20080211
  Transmission Date: 20080703
  Serious: Yes (Hospitalization, Other)
  Sender: FDA-Public Use
  Company Number: US-MERCK-0703USA03255

PATIENT
  Age: 72 Year
  Sex: Female
  Weight: 52 kg

DRUGS (9)
  1. FOSAMAX [Suspect]
     Indication: OSTEOPENIA
     Route: 048
     Dates: start: 20001020, end: 20010418
  2. FOSAMAX [Suspect]
     Route: 048
     Dates: start: 19980926, end: 20001019
  3. FOSAMAX [Suspect]
     Route: 048
     Dates: start: 20010419, end: 20060428
  4. FOSAMAX [Suspect]
     Indication: OSTEOPOROSIS
     Route: 048
     Dates: start: 20001020, end: 20010418
  5. FOSAMAX [Suspect]
     Route: 048
     Dates: start: 19980926, end: 20001019
  6. FOSAMAX [Suspect]
     Route: 048
     Dates: start: 20010419, end: 20060428
  7. ESTROGENS (UNSPECIFIED) [Concomitant]
     Route: 065
  8. LEVOTHYROXINE SODIUM [Concomitant]
     Indication: HYPOTHYROIDISM
     Route: 065
     Dates: start: 20041206
  9. TOPROL-XL [Concomitant]
     Indication: HYPERTENSION
     Route: 048
     Dates: start: 20050920

REACTIONS (33)
  - ADVERSE EVENT [None]
  - ANXIETY [None]
  - ATROPHIC VULVOVAGINITIS [None]
  - AUTOMATIC BLADDER [None]
  - BACK PAIN [None]
  - CARDIAC DISORDER [None]
  - CHEST PAIN [None]
  - COLONIC POLYP [None]
  - CONSTIPATION [None]
  - CYSTITIS NONINFECTIVE [None]
  - DEPRESSION [None]
  - DYSPEPSIA [None]
  - DYSPNOEA [None]
  - EMOTIONAL DISTRESS [None]
  - EYELID OEDEMA [None]
  - GASTRIC POLYPS [None]
  - GASTROOESOPHAGEAL REFLUX DISEASE [None]
  - GOUT [None]
  - HIATUS HERNIA [None]
  - HYPERCHOLESTEROLAEMIA [None]
  - HYPERLIPIDAEMIA [None]
  - JAW FRACTURE [None]
  - KYPHOSIS [None]
  - NAUSEA [None]
  - OSTEOMYELITIS [None]
  - OSTEONECROSIS [None]
  - RECTAL HAEMORRHAGE [None]
  - SPINAL COMPRESSION FRACTURE [None]
  - SWELLING FACE [None]
  - UPPER RESPIRATORY TRACT INFECTION [None]
  - URETHRAL DISORDER [None]
  - URETHRAL MEATUS STENOSIS [None]
  - URINARY TRACT INFECTION [None]
